FAERS Safety Report 24281484 (Version 1)
Quarter: 2024Q3

REPORT INFORMATION
  Report Type: Report from Study
  Country: US (occurrence: US)
  Receive Date: 20240904
  Receipt Date: 20240904
  Transmission Date: 20241017
  Serious: No
  Sender: ROCHE
  Company Number: US-ROCHE-3524665

PATIENT
  Age: 58 Year
  Sex: Female
  Weight: 44.0 kg

DRUGS (2)
  1. OCREVUS [Suspect]
     Active Substance: OCRELIZUMAB
     Indication: Primary progressive multiple sclerosis
     Dosage: DATE OF TREATMENT: 03/FEB/2022,04/AUG/2022, 01/FEB/2024, 01/AUG/2024.
     Route: 065
     Dates: start: 20180801
  2. ESTRADIOL [Concomitant]
     Active Substance: ESTRADIOL
     Indication: Menopause
     Route: 067

REACTIONS (10)
  - Constipation [Not Recovered/Not Resolved]
  - Headache [Not Recovered/Not Resolved]
  - Fatigue [Not Recovered/Not Resolved]
  - Rash [Not Recovered/Not Resolved]
  - Illness [Not Recovered/Not Resolved]
  - Fungal infection [Unknown]
  - Deafness unilateral [Unknown]
  - Bladder dysfunction [Unknown]
  - Blood cholesterol increased [Unknown]
  - Multiple sclerosis [Unknown]

NARRATIVE: CASE EVENT DATE: 20240201
